FAERS Safety Report 6406643-8 (Version None)
Quarter: 2009Q4

REPORT INFORMATION
  Report Type: 
  Country: None (occurrence: None)
  Receive Date: 20091020
  Receipt Date: 20091013
  Transmission Date: 20100525
  Serious: Yes (Other)
  Sender: FDA-Public Use
  Company Number: AU-RANBAXY-2009RR-28631

PATIENT
  Age: 6 Year
  Sex: Male

DRUGS (3)
  1. ISOTRETINOIN [Suspect]
     Dosage: 160 MG/M2, UNK
  2. ISOTRETINOIN [Suspect]
     Dosage: 125 MG/M2, UNK
  3. ANTI-GD2 MONOCLONAL ANTIBODY [Suspect]

REACTIONS (4)
  - BONE LESION [None]
  - DRUG INTERACTION [None]
  - HYPERCALCAEMIA [None]
  - OFF LABEL USE [None]
